FAERS Safety Report 7525893-0 (Version None)
Quarter: 2011Q2

REPORT INFORMATION
  Report Type: 
  Country: None (occurrence: None)
  Receive Date: 20110606
  Receipt Date: 20100824
  Transmission Date: 20111010
  Serious: Yes (Other)
  Sender: FDA-Public Use
  Company Number: B0672539A

PATIENT
  Age: 24 Year
  Sex: Female

DRUGS (1)
  1. ZENTEL [Suspect]
     Indication: PROPHYLAXIS
     Dosage: 2TAB PER DAY
     Route: 048
     Dates: start: 20100730, end: 20100730

REACTIONS (2)
  - DRUG EXPOSURE DURING PREGNANCY [None]
  - ABORTION INDUCED [None]
